FAERS Safety Report 17602180 (Version 1)
Quarter: 2020Q1

REPORT INFORMATION
  Report Type: Spontaneous
  Country: US (occurrence: US)
  Receive Date: 20200331
  Receipt Date: 20200331
  Transmission Date: 20200409
  Serious: No
  Sender: FDA-Public Use
  Company Number: US-BEH-2020114498

PATIENT
  Age: 72 Year
  Sex: Male

DRUGS (14)
  1. PREDNISONE. [Concomitant]
     Active Substance: PREDNISONE
  2. AMOXICILLIN. [Concomitant]
     Active Substance: AMOXICILLIN
  3. CARVEDILOL. [Concomitant]
     Active Substance: CARVEDILOL
  4. LEVETIRACETAM. [Concomitant]
     Active Substance: LEVETIRACETAM
  5. SIMVASTATIN. [Concomitant]
     Active Substance: SIMVASTATIN
  6. VITAMIN C [Concomitant]
     Active Substance: ASCORBIC ACID
  7. ASPIRIN 81 [Concomitant]
     Active Substance: ASPIRIN
  8. HYDRALAZINE HCL [Concomitant]
     Active Substance: HYDRALAZINE HYDROCHLORIDE
  9. LISINOPRIL. [Concomitant]
     Active Substance: LISINOPRIL
  10. HIZENTRA [Suspect]
     Active Substance: HUMAN IMMUNOGLOBULIN G
     Indication: IMMUNODEFICIENCY COMMON VARIABLE
     Dosage: 6 GRAM/30 ML, QW
     Route: 058
     Dates: start: 2017
  11. ROSUVASTATIN CALCIUM. [Concomitant]
     Active Substance: ROSUVASTATIN CALCIUM
  12. COLCHICINE. [Concomitant]
     Active Substance: COLCHICINE
  13. SUPER B COMPLEX WITH VITAMIN C [Concomitant]
  14. ELIQUIS [Concomitant]
     Active Substance: APIXABAN

REACTIONS (1)
  - Sinus disorder [Recovered/Resolved]

NARRATIVE: CASE EVENT DATE: 202002
